FAERS Safety Report 4654565-5 (Version None)
Quarter: 2005Q2

REPORT INFORMATION
  Report Type: 
  Country: None (occurrence: None)
  Receive Date: 20050506
  Receipt Date: 20050208
  Transmission Date: 20051028
  Serious: Yes (Other)
  Sender: FDA-Public Use
  Company Number: GB-BRISTOL-MYERS SQUIBB COMPANY-12859302

PATIENT
  Age: 60 Year
  Sex: Male
  Weight: 111 kg

DRUGS (4)
  1. LIPOSTAT 10% [Suspect]
     Indication: PROPHYLAXIS
     Dosage: INITIATED ON 10 MG ON 25APR2000; INCREASED TO 20 MG IN 16APR2004; INCREASED TO 40 MG ON 24NOV2004
     Route: 048
     Dates: start: 20000425
  2. BISOPROLOL FUMARATE [Concomitant]
     Indication: MYOCARDIAL INFARCTION
     Route: 048
     Dates: start: 20000425
  3. IMDUR [Concomitant]
     Indication: ANGINA PECTORIS
     Route: 048
     Dates: start: 20000621
  4. RAMIPRIL [Concomitant]
     Indication: BLOOD PRESSURE
     Route: 048
     Dates: start: 20020806

REACTIONS (1)
  - GLYCOSYLATED HAEMOGLOBIN INCREASED [None]
